FAERS Safety Report 9928167 (Version 2)
Quarter: 2014Q1

REPORT INFORMATION
  Report Type: Spontaneous
  Country: US (occurrence: US)
  Receive Date: 20140227
  Receipt Date: 20140227
  Transmission Date: 20141002
  Serious: Yes (Disabling)
  Sender: FDA-Public Use
  Company Number: US-GE HEALTHCARE MEDICAL DIAGNOSTICS-OSCN-PR-0706S-0252

PATIENT
  Sex: Female

DRUGS (6)
  1. OMNISCAN [Suspect]
     Indication: THROMBOSIS
     Route: 042
     Dates: start: 20050509, end: 20050509
  2. TOPROL [Concomitant]
     Indication: HYPERTENSION
  3. ALTACE [Concomitant]
     Indication: HYPERTENSION
  4. PHOSLO [Concomitant]
     Indication: BLOOD PHOSPHORUS
  5. ROCALTROL [Concomitant]
     Indication: BLOOD PARATHYROID HORMONE
  6. EPOGEN [Concomitant]
     Indication: PRODUCT USED FOR UNKNOWN INDICATION

REACTIONS (1)
  - Nephrogenic systemic fibrosis [Not Recovered/Not Resolved]
